FAERS Safety Report 5813455-2 (Version None)
Quarter: 2008Q3

REPORT INFORMATION
  Report Type: 
  Country: None (occurrence: None)
  Receive Date: 20080716
  Receipt Date: 20080716
  Transmission Date: 20090109
  Serious: Yes (Hospitalization)
  Sender: FDA-Public Use
  Company Number: None

PATIENT
  Sex: Male
  Weight: 78 kg

DRUGS (1)
  1. TACROLIMUS [Suspect]
     Dosage: 1 MG

REACTIONS (5)
  - FLANK PAIN [None]
  - LYMPHOHISTIOCYTOSIS [None]
  - PULMONARY FIBROSIS [None]
  - PULMONARY MASS [None]
  - PULMONARY NECROSIS [None]
